FAERS Safety Report 14293722 (Version 1)
Quarter: 2017Q4

REPORT INFORMATION
  Report Type: Report from Study
  Country: None (occurrence: ES)
  Receive Date: 20171216
  Receipt Date: 20171216
  Transmission Date: 20180321
  Serious: Yes (Other)
  Sender: FDA-Public Use
  Company Number: ES-ABBVIE-17K-144-2195060-00

PATIENT
  Age: 48 Year
  Sex: Male
  Weight: 84 kg

DRUGS (4)
  1. FLUOXETINE [Concomitant]
     Active Substance: FLUOXETINE HYDROCHLORIDE
     Indication: ANXIETY
     Route: 048
     Dates: start: 2015
  2. IMUREL [Concomitant]
     Active Substance: AZATHIOPRINE SODIUM
     Indication: CROHN^S DISEASE
     Route: 048
  3. HUMIRA [Suspect]
     Active Substance: ADALIMUMAB
     Indication: CROHN^S DISEASE
     Route: 058
     Dates: start: 20160304, end: 201704
  4. HUMIRA [Suspect]
     Active Substance: ADALIMUMAB
     Indication: CROHN^S DISEASE
     Route: 058
     Dates: start: 201704

REACTIONS (1)
  - Fistula [Not Recovered/Not Resolved]

NARRATIVE: CASE EVENT DATE: 201707
